FAERS Safety Report 7114740-7 (Version None)
Quarter: 2010Q4

REPORT INFORMATION
  Report Type: 
  Country: None (occurrence: None)
  Receive Date: 20101122
  Receipt Date: 20101109
  Transmission Date: 20110411
  Serious: No
  Sender: FDA-Public Use
  Company Number: US-BIOGENIDEC-2010BI021491

PATIENT
  Age: 63 Year
  Sex: Female

DRUGS (4)
  1. TYSABRI [Suspect]
     Indication: MULTIPLE SCLEROSIS
     Route: 042
     Dates: start: 20050119, end: 20050119
  2. TYSABRI [Suspect]
     Route: 042
     Dates: start: 20070124, end: 20100203
  3. TYSABRI [Suspect]
     Route: 042
     Dates: start: 20100101, end: 20100101
  4. TYSABRI [Suspect]
     Route: 042
     Dates: start: 20100101

REACTIONS (1)
  - JC VIRUS TEST POSITIVE [None]
